FAERS Safety Report 10237644 (Version 1)
Quarter: 2014Q2

REPORT INFORMATION
  Report Type: Report from Study
  Country: US (occurrence: US)
  Receive Date: 20140616
  Receipt Date: 20140616
  Transmission Date: 20141212
  Serious: Yes (Other)
  Sender: FDA-Public Use
  Company Number: US-ROCHE-1418024

PATIENT
  Sex: Female

DRUGS (2)
  1. PERJETA [Suspect]
     Indication: BREAST CANCER
     Route: 042
     Dates: start: 2013
  2. HERCEPTIN [Suspect]
     Indication: BREAST CANCER
     Route: 042
     Dates: start: 2013

REACTIONS (3)
  - Disease progression [Unknown]
  - Echocardiogram abnormal [Recovered/Resolved]
  - Blood pressure decreased [Unknown]
